FAERS Safety Report 9601374 (Version 1)
Quarter: 2013Q4

REPORT INFORMATION
  Report Type: Report from Study
  Country: DE (occurrence: DE)
  Receive Date: 20131007
  Receipt Date: 20131007
  Transmission Date: 20140711
  Serious: Yes (Other)
  Sender: FDA-Public Use
  Company Number: DE-BIOGENIDEC-2013BI094795

PATIENT
  Age: 44 Year
  Sex: Female

DRUGS (4)
  1. TYSABRI [Suspect]
     Indication: RELAPSING-REMITTING MULTIPLE SCLEROSIS
     Route: 042
     Dates: start: 20120410, end: 20121219
  2. FINGOLIMOD [Concomitant]
     Indication: MULTIPLE SCLEROSIS
     Dates: start: 201303, end: 201303
  3. CARBAMAZEPINE [Concomitant]
     Indication: TRIGEMINAL NEURALGIA
     Route: 048
     Dates: start: 20090121
  4. CITALOPRAM [Concomitant]
     Route: 048
     Dates: start: 20090316

REACTIONS (1)
  - Atrioventricular block second degree [Recovered/Resolved]
